FAERS Safety Report 18004640 (Version 1)
Quarter: 2020Q3

REPORT INFORMATION
  Report Type: Spontaneous
  Country: US (occurrence: US)
  Receive Date: 20200709
  Receipt Date: 20200709
  Transmission Date: 20201103
  Serious: No
  Sender: FDA-Public Use
  Company Number: None

PATIENT
  Age: 25 Year
  Sex: Female

DRUGS (1)
  1. FERROUS SULFATE. [Suspect]
     Active Substance: FERROUS SULFATE

REACTIONS (7)
  - Product label confusion [None]
  - Exposure during pregnancy [None]
  - Product prescribing issue [None]
  - Accidental overdose [None]
  - Malaise [None]
  - Vomiting [None]
  - Product packaging quantity issue [None]
